FAERS Safety Report 4275741-X (Version None)
Quarter: 2004Q1

REPORT INFORMATION
  Report Type: 
  Country: None (occurrence: None)
  Receive Date: 20040121
  Receipt Date: 20031212
  Transmission Date: 20041129
  Serious: Yes (Other)
  Sender: FDA-Public Use
  Company Number: PHEH2003US11375

PATIENT
  Age: 73 Year
  Sex: Male

DRUGS (4)
  1. ZOMETA [Suspect]
     Indication: PROSTATE CANCER
     Dosage: 4 MG, QMO
     Route: 042
     Dates: start: 20011206, end: 20021227
  2. PREDNISONE [Concomitant]
     Dosage: 10 MG, QD
  3. QUADRAMET [Concomitant]
  4. TAXOTERE [Concomitant]

REACTIONS (3)
  - IMPAIRED HEALING [None]
  - TOOTH DISORDER [None]
  - TOOTH EXTRACTION [None]
